FAERS Safety Report 8164394-6 (Version None)
Quarter: 2012Q1

REPORT INFORMATION
  Report Type: 
  Country: None (occurrence: None)
  Receive Date: 20120224
  Receipt Date: 20120215
  Transmission Date: 20120608
  Serious: Yes (Hospitalization)
  Sender: FDA-Public Use
  Company Number: BR-ASTRAZENECA-2012SE11467

PATIENT
  Age: 88 Year
  Sex: Female

DRUGS (4)
  1. PROLOPA [Concomitant]
     Indication: PARKINSON'S DISEASE
     Dosage: 200/50 MG 1 1/2 DAILY
     Route: 048
  2. ATACAND HCT [Suspect]
     Indication: HYPERTENSION
     Dosage: 16+12.5 MG DAILY
     Route: 048
     Dates: start: 20100101
  3. SERTRALINE HYDROCHLORIDE [Concomitant]
     Indication: PARKINSON'S DISEASE
     Route: 048
  4. CLONAZEPAM [Concomitant]
     Indication: DEPRESSION
     Route: 048

REACTIONS (3)
  - BLOOD PRESSURE INCREASED [None]
  - DRUG INEFFECTIVE [None]
  - VOMITING [None]
